FAERS Safety Report 4557592-1 (Version None)
Quarter: 2005Q1

REPORT INFORMATION
  Report Type: 
  Country: None (occurrence: None)
  Receive Date: 20050120
  Receipt Date: 20040720
  Transmission Date: 20050727
  Serious: Yes (Hospitalization, Other)
  Sender: FDA-Public Use
  Company Number: US-MERCK-0407USA01740

PATIENT
  Age: 52 Year
  Sex: Female
  Weight: 80 kg

DRUGS (4)
  1. VIOXX [Suspect]
     Indication: OSTEOARTHRITIS
     Route: 048
     Dates: start: 19991001, end: 20011101
  2. VIOXX [Suspect]
     Route: 048
     Dates: start: 20021101
  3. VICODIN [Concomitant]
     Indication: PAIN
     Route: 065
  4. CLONIDINE [Concomitant]
     Indication: PAIN
     Route: 065

REACTIONS (41)
  - ABDOMINAL PAIN UPPER [None]
  - ACCIDENT [None]
  - ACUTE MYOCARDIAL INFARCTION [None]
  - ANXIETY [None]
  - ARTHRALGIA [None]
  - ARTHROPATHY [None]
  - ATRIAL FIBRILLATION [None]
  - BLOOD ALKALINE PHOSPHATASE INCREASED [None]
  - BLOOD PRESSURE INCREASED [None]
  - BLOOD TRIGLYCERIDES INCREASED [None]
  - CARDIOMEGALY [None]
  - CORONARY ARTERY DISEASE [None]
  - CORONARY ARTERY STENOSIS [None]
  - CYSTITIS [None]
  - DEPRESSION [None]
  - DERMATITIS CONTACT [None]
  - DIABETES MELLITUS INADEQUATE CONTROL [None]
  - DIABETIC NEPHROPATHY [None]
  - DRUG HYPERSENSITIVITY [None]
  - EXERCISE LACK OF [None]
  - FOOD ALLERGY [None]
  - GASTROOESOPHAGEAL REFLUX DISEASE [None]
  - GENERAL PHYSICAL HEALTH DETERIORATION [None]
  - HEPATIC ENZYME INCREASED [None]
  - HEPATIC STEATOSIS [None]
  - HYPERCHOLESTEROLAEMIA [None]
  - HYPERTENSION [None]
  - JOINT SPRAIN [None]
  - MIGRAINE [None]
  - MYOCARDIAL INFARCTION [None]
  - OSTEOARTHRITIS [None]
  - PAIN [None]
  - PERNICIOUS ANAEMIA [None]
  - PRODUCTIVE COUGH [None]
  - PULMONARY CONGESTION [None]
  - SINUSITIS [None]
  - TRAUMATIC ARTHRITIS [None]
  - UPPER RESPIRATORY TRACT INFECTION [None]
  - VENTRICULAR FIBRILLATION [None]
  - VENTRICULAR TACHYCARDIA [None]
  - WEIGHT INCREASED [None]
